FAERS Safety Report 5118942-0 (Version None)
Quarter: 2006Q3

REPORT INFORMATION
  Report Type: 
  Country: None (occurrence: None)
  Receive Date: 20060927
  Receipt Date: 20060821
  Transmission Date: 20061208
  Serious: Yes (Death, Hospitalization, Other)
  Sender: FDA-Public Use
  Company Number: 2006SP000065

PATIENT
  Age: 72 Year
  Sex: Female
  Weight: 63.5 kg

DRUGS (19)
  1. INTEGRILIN [Suspect]
     Indication: CORONARY ARTERIAL STENT INSERTION
     Dosage: SEE IMAGE
     Route: 042
     Dates: start: 20040818, end: 20040818
  2. INTEGRILIN [Suspect]
     Indication: CORONARY ARTERIAL STENT INSERTION
     Dosage: SEE IMAGE
     Route: 042
     Dates: start: 20040818, end: 20040818
  3. LOVENOX [Suspect]
     Indication: MYOCARDIAL INFARCTION
  4. TENECTEPLASE [Suspect]
     Indication: MYOCARDIAL INFARCTION
     Dosage: 50 MG; IV
     Route: 042
     Dates: start: 20040818, end: 20040818
  5. ASPIRIN [Suspect]
     Indication: MYOCARDIAL INFARCTION
     Dosage: 325 MG;
  6. PLAVIX [Suspect]
     Indication: MYOCARDIAL INFARCTION
     Dosage: 600 MG;
  7. NORMAL SALINE [Concomitant]
  8. VERSED [Concomitant]
  9. FENTANYL [Concomitant]
  10. LOPRESSOR [Concomitant]
  11. LIPITOR [Concomitant]
  12. CAPTOPRIL [Concomitant]
  13. PAXIL [Concomitant]
  14. PROTONIX [Concomitant]
  15. NITROGLYCERIN [Concomitant]
  16. TYLENOL [Concomitant]
  17. AMBIEN [Concomitant]
  18. COLACE [Concomitant]
  19. DARVOCET [Concomitant]

REACTIONS (25)
  - ACUTE MYOCARDIAL INFARCTION [None]
  - AORTIC ARTERIOSCLEROSIS [None]
  - AORTIC VALVE INCOMPETENCE [None]
  - ARTERIOSCLEROSIS CORONARY ARTERY [None]
  - ATELECTASIS [None]
  - BRAIN HERNIATION [None]
  - BRONCHIOLITIS [None]
  - CARDIOMEGALY [None]
  - CEREBRAL ARTERIOSCLEROSIS [None]
  - GASTRIC NEOPLASM [None]
  - HAEMORRHAGE INTRACRANIAL [None]
  - HEPATIC NECROSIS [None]
  - HEPATIC STEATOSIS [None]
  - HYPERPLASTIC CHOLECYSTOPATHY [None]
  - HYPERTROPHIC CARDIOMYOPATHY [None]
  - MITRAL VALVE INCOMPETENCE [None]
  - NEPHROSCLEROSIS [None]
  - PANCREATIC DISORDER [None]
  - PLEURAL ADHESION [None]
  - PNEUMONIA [None]
  - PULMONARY OEDEMA [None]
  - RENAL CYST [None]
  - SPINAL EPIDURAL HAEMORRHAGE [None]
  - SUBDURAL HAEMORRHAGE [None]
  - UTERINE LEIOMYOMA [None]
